FAERS Safety Report 24086903 (Version 1)
Quarter: 2024Q3

REPORT INFORMATION
  Report Type: Spontaneous
  Country: JP (occurrence: JP)
  Receive Date: 20240713
  Receipt Date: 20240713
  Transmission Date: 20241017
  Serious: Yes (Other)
  Sender: ABBVIE
  Company Number: JP-ABBVIE-5834895

PATIENT
  Age: 62 Year
  Sex: Male

DRUGS (2)
  1. ALPHAGAN P [Suspect]
     Active Substance: BRIMONIDINE TARTRATE
     Indication: Normal tension glaucoma
     Dosage: DAILY DOSE: 2 DROP
     Route: 047
     Dates: start: 202204, end: 20230807
  2. BRIMONIDINE TARTRATE\BRINZOLAMIDE [Suspect]
     Active Substance: BRIMONIDINE TARTRATE\BRINZOLAMIDE
     Indication: Normal tension glaucoma
     Route: 047

REACTIONS (4)
  - Corneal neovascularisation [Recovered/Resolved]
  - Hyperaemia [Recovered/Resolved]
  - Corneal opacity [Not Recovered/Not Resolved]
  - Corneal infiltrates [Recovered/Resolved with Sequelae]

NARRATIVE: CASE EVENT DATE: 20220404
